FAERS Safety Report 4291014-3 (Version None)
Quarter: 2004Q1

REPORT INFORMATION
  Report Type: 
  Country: None (occurrence: None)
  Receive Date: 20040211
  Receipt Date: 20031028
  Transmission Date: 20041129
  Serious: Yes (Other)
  Sender: FDA-Public Use
  Company Number: US-GLAXOSMITHKLINE-A0431916A

PATIENT
  Age: 15 Year
  Sex: Male
  Weight: 71.4 kg

DRUGS (2)
  1. PAXIL [Suspect]
     Indication: DEPRESSION
     Dosage: 40MG PER DAY
     Route: 048
     Dates: start: 20020101, end: 20031104
  2. RISPERDAL [Concomitant]
     Dosage: .5MG TWICE PER DAY
     Route: 048
     Dates: start: 20030801

REACTIONS (1)
  - EJACULATION FAILURE [None]
